FAERS Safety Report 9609283 (Version 2)
Quarter: 2013Q4

REPORT INFORMATION
  Report Type: Report from Study
  Country: US (occurrence: US)
  Receive Date: 20131009
  Receipt Date: 20131205
  Transmission Date: 20140711
  Serious: Yes (Life-Threatening, Hospitalization, Other)
  Sender: FDA-Public Use
  Company Number: US-PFIZER INC-2013286852

PATIENT
  Age: 65 Year
  Sex: Female
  Weight: 36.3 kg

DRUGS (9)
  1. CISPLATIN [Suspect]
     Indication: HEAD AND NECK CANCER METASTATIC
     Dosage: 124 MG, CYCLIC
     Route: 042
     Dates: start: 20100816, end: 20100816
  2. FLUOROURACIL [Suspect]
     Indication: HEAD AND NECK CANCER METASTATIC
     Dosage: 1240 MG, FOR 96 HOURS CONTINUOUSLY
     Route: 042
     Dates: start: 20100816, end: 20100820
  3. DOCUSATE SODIUM [Concomitant]
     Indication: CONSTIPATION
     Dosage: UNK
  4. MACROGOL (POLYETHYLENE GLYCOL) [Concomitant]
     Indication: CONSTIPATION
     Dosage: UNK
  5. LIDOCAINE VISCOUS [Concomitant]
     Indication: HYPOAESTHESIA ORAL
     Dosage: UNK
  6. LIDOCAINE VISCOUS [Concomitant]
     Indication: PHARYNGEAL HYPOAESTHESIA
  7. LEVOTHYROXINE [Concomitant]
     Indication: THYROID HORMONE REPLACEMENT THERAPY
     Dosage: UNK
  8. PREVACID [Concomitant]
     Indication: PROPHYLAXIS
     Dosage: UNK
  9. OXYCODONE [Concomitant]
     Indication: ORAL PAIN
     Dosage: UNK

REACTIONS (3)
  - Mucosal inflammation [Recovered/Resolved]
  - Atrial fibrillation [Recovered/Resolved]
  - Neutropenia [Recovered/Resolved]
